FAERS Safety Report 5496568-7 (Version None)
Quarter: 2007Q4

REPORT INFORMATION
  Report Type: 
  Country: None (occurrence: None)
  Receive Date: 20071025
  Receipt Date: 20070618
  Transmission Date: 20080405
  Serious: No
  Sender: FDA-Public Use
  Company Number: A0657210A

PATIENT
  Age: 69 Year
  Sex: Male

DRUGS (5)
  1. ADVAIR DISKUS 100/50 [Suspect]
     Dosage: 1PUFF TWICE PER DAY
     Route: 055
  2. UNKNOWN MEDICATION [Concomitant]
  3. FELODIPINE [Concomitant]
  4. ALPRAZOLAM [Concomitant]
  5. VITAMIN [Concomitant]

REACTIONS (2)
  - DYSPNOEA EXERTIONAL [None]
  - MUSCULAR WEAKNESS [None]
